FAERS Safety Report 8923870 (Version 4)
Quarter: 2015Q3

REPORT INFORMATION
  Report Type: Spontaneous
  Country: US (occurrence: US)
  Receive Date: 20121126
  Receipt Date: 20150810
  Transmission Date: 20151125
  Serious: Yes (Death, Hospitalization, Disabling, Other)
  Sender: FDA-Public Use
  Company Number: US-009507513-1211USA008151

PATIENT
  Sex: Female

DRUGS (8)
  1. FOSAMAX [Suspect]
     Active Substance: ALENDRONATE SODIUM
     Dosage: UNK
     Route: 048
     Dates: start: 2008, end: 2010
  2. FOSAMAX [Suspect]
     Active Substance: ALENDRONATE SODIUM
     Dosage: 70 MG QW
     Route: 048
     Dates: start: 20041217
  3. PLENDIL [Concomitant]
     Active Substance: FELODIPINE
     Indication: HYPERTENSION
     Dosage: UNK, UNKNOWN
     Route: 048
     Dates: start: 1975, end: 20130501
  4. LIPITOR [Concomitant]
     Active Substance: ATORVASTATIN CALCIUM
     Indication: BLOOD CHOLESTEROL INCREASED
     Dosage: UNK, UNKNOWN
     Route: 048
     Dates: start: 1985, end: 20130501
  5. FOSAMAX [Suspect]
     Active Substance: ALENDRONATE SODIUM
     Indication: OSTEOPOROSIS
     Dosage: 10 MG, UNKNOWN
     Route: 048
     Dates: start: 20010501, end: 20011008
  6. ALENDRONATE SODIUM. [Suspect]
     Active Substance: ALENDRONATE SODIUM
     Indication: OSTEOPOROSIS
     Dosage: 35 MG, QW
     Route: 048
     Dates: start: 20030217
  7. FOSAMAX [Suspect]
     Active Substance: ALENDRONATE SODIUM
     Indication: OSTEOPENIA
     Dosage: 70 MG QW
     Route: 048
     Dates: start: 20011114, end: 20041217
  8. ALENDRONATE SODIUM. [Suspect]
     Active Substance: ALENDRONATE SODIUM
     Indication: OSTEOPENIA

REACTIONS (29)
  - Femur fracture [Not Recovered/Not Resolved]
  - Surgery [Unknown]
  - Osteoporosis [Not Recovered/Not Resolved]
  - Low turnover osteopathy [Not Recovered/Not Resolved]
  - Dehydration [Unknown]
  - Aortic stenosis [Unknown]
  - Osteopenia [Unknown]
  - Spinal laminectomy [Unknown]
  - Adverse event [Unknown]
  - Adverse event [Unknown]
  - Hyperlipidaemia [Unknown]
  - Arthritis [Unknown]
  - Open reduction of fracture [Unknown]
  - Femur fracture [Not Recovered/Not Resolved]
  - Sepsis [Fatal]
  - Cardiac murmur [Unknown]
  - Oedema [Unknown]
  - Spondylitis [Unknown]
  - Atrial fibrillation [Fatal]
  - Cardiac failure acute [Fatal]
  - Pneumonia [Fatal]
  - Balance disorder [Unknown]
  - Intervertebral disc operation [Unknown]
  - Spinal column stenosis [Unknown]
  - Multiple fractures [Not Recovered/Not Resolved]
  - Pneumonia [Unknown]
  - Urinary tract infection [Fatal]
  - Paraplegia [Unknown]
  - Intervertebral disc protrusion [Unknown]

NARRATIVE: CASE EVENT DATE: 2001
